FAERS Safety Report 6944002-X (Version None)
Quarter: 2010Q3

REPORT INFORMATION
  Report Type: 
  Country: None (occurrence: None)
  Receive Date: 20100827
  Receipt Date: 20100820
  Transmission Date: 20110219
  Serious: Yes (Hospitalization)
  Sender: FDA-Public Use
  Company Number: US-BIOGENIDEC-2010BI007093

PATIENT
  Age: 57 Year
  Sex: Female

DRUGS (5)
  1. TYSABRI [Suspect]
     Indication: MULTIPLE SCLEROSIS
     Route: 042
     Dates: start: 20060715, end: 20080825
  2. TYSABRI [Suspect]
     Route: 042
     Dates: start: 20091020, end: 20100507
  3. TYSABRI [Suspect]
     Route: 042
     Dates: start: 20041201, end: 20050131
  4. AVONEX [Concomitant]
     Indication: MULTIPLE SCLEROSIS
     Route: 030
  5. LYRICA [Concomitant]
     Indication: NEUROPATHY PERIPHERAL

REACTIONS (11)
  - BRAIN NEOPLASM BENIGN [None]
  - CARDIAC DISORDER [None]
  - CENTRAL NERVOUS SYSTEM LESION [None]
  - COGNITIVE DISORDER [None]
  - DRUG INEFFECTIVE [None]
  - GAIT DISTURBANCE [None]
  - INTRACRANIAL HAEMANGIOMA [None]
  - MULTIPLE SCLEROSIS [None]
  - MULTIPLE SCLEROSIS RELAPSE [None]
  - PAIN [None]
  - SCOLIOSIS [None]
